FAERS Safety Report 4490702-3 (Version None)
Quarter: 2004Q4

REPORT INFORMATION
  Report Type: 
  Country: None (occurrence: None)
  Receive Date: 20041102
  Receipt Date: 20040630
  Transmission Date: 20050328
  Serious: Yes (Hospitalization)
  Sender: FDA-Public Use
  Company Number: FR-ROCHE-372726

PATIENT
  Age: 32 Year
  Sex: Male

DRUGS (1)
  1. LARIAM [Suspect]
     Indication: MALARIA PROPHYLAXIS
     Route: 048
     Dates: start: 20040306, end: 20040415

REACTIONS (6)
  - LEFT VENTRICULAR FAILURE [None]
  - MYOCARDIAL INFARCTION [None]
  - MYOCARDITIS [None]
  - PERICARDIAL DISEASE [None]
  - PULMONARY OEDEMA [None]
  - SARCOIDOSIS [None]
